FAERS Safety Report 4415757-3 (Version None)
Quarter: 2004Q2

REPORT INFORMATION
  Report Type: 
  Country: None (occurrence: None)
  Receive Date: 20040628
  Receipt Date: 20040323
  Transmission Date: 20050107
  Serious: Yes (Other)
  Sender: FDA-Public Use
  Company Number: 362771

PATIENT
  Age: 50 Year
  Sex: Male
  Weight: 81.6 kg

DRUGS (4)
  1. CELLCEPT [Suspect]
     Indication: BONE MARROW TRANSPLANT
     Dosage: 500 MG   2 PER DAY    ORAL
     Route: 048
     Dates: start: 20030415
  2. CYCLOSPORINE [Suspect]
     Indication: BONE MARROW TRANSPLANT
     Dosage: ORAL
     Route: 048
     Dates: start: 19980615
  3. PREDNISONE [Concomitant]
  4. ACYCLOVIR [Concomitant]

REACTIONS (2)
  - STOMATITIS [None]
  - THROMBOSIS [None]
